FAERS Safety Report 9659002 (Version 5)
Quarter: 2014Q3

REPORT INFORMATION
  Report Type: Report from Study
  Country: IT (occurrence: IT)
  Receive Date: 20131031
  Receipt Date: 20140709
  Transmission Date: 20150326
  Serious: Yes (Hospitalization, Other)
  Sender: FDA-Public Use
  Company Number: IT-AMGEN-ITACT2013075858

PATIENT
  Age: 67 Year
  Sex: Female
  Weight: 68 kg

DRUGS (33)
  1. DELORAZEPAM [Concomitant]
     Active Substance: DELORAZEPAM
     Dosage: 15 GTT, UNK
     Route: 048
     Dates: start: 20130108
  2. TOFRANIL [Concomitant]
     Active Substance: IMIPRAMINE HYDROCHLORIDE
     Dosage: 25 MG, UNK
     Route: 048
     Dates: start: 20121218
  3. SORBICLIS [Concomitant]
     Dosage: 120 ML, UNK
     Route: 054
     Dates: start: 20130826, end: 20130827
  4. DAPAROX                            /00830802/ [Concomitant]
     Dosage: 7 GTT, UNK
     Route: 048
     Dates: start: 20130821
  5. DENOSUMAB [Suspect]
     Active Substance: DENOSUMAB
     Indication: PLASMA CELL MYELOMA
     Dosage: UNK
     Route: 065
     Dates: start: 20121217
  6. CLORFENAMINA [Concomitant]
     Dosage: 10 MG, UNK
     Route: 042
     Dates: start: 20130824, end: 20130824
  7. PLATELETS [Concomitant]
     Active Substance: HUMAN PLATELET, ALLOGENIC
     Dosage: 1 UNK, UNK
     Route: 042
     Dates: start: 20130901, end: 20130901
  8. TARGIN [Concomitant]
     Active Substance: NALOXONE HYDROCHLORIDE\OXYCODONE HYDROCHLORIDE
     Dosage: 30 MG, UNK
     Route: 048
     Dates: start: 20130108
  9. FLUCONAZOLO [Concomitant]
     Dosage: 200 MG, UNK
     Route: 048
     Dates: start: 201308, end: 20131004
  10. PARACETAMOLO [Concomitant]
     Active Substance: ACETAMINOPHEN
     Dosage: 500MG - 1 G, UNK
     Route: 048
     Dates: start: 20121212, end: 20140113
  11. TINSET [Concomitant]
     Active Substance: OXATOMIDE
     Dosage: 60 MG, UNK
     Route: 048
     Dates: start: 20121212, end: 20140113
  12. NAVOBAN [Concomitant]
     Active Substance: TROPISETRON HYDROCHLORIDE
     Dosage: 2 ML, UNK
     Route: 042
     Dates: start: 20130825, end: 20130825
  13. PECFENT [Concomitant]
     Active Substance: FENTANYL CITRATE
     Dosage: 400 MUG, UNK
     Route: 055
     Dates: start: 20130108
  14. ALPRAZOLAM. [Concomitant]
     Active Substance: ALPRAZOLAM
     Dosage: 12 GTT, UNK
     Route: 048
     Dates: start: 20130108
  15. SELEPARINA [Concomitant]
     Active Substance: NADROPARIN CALCIUM
     Dosage: 0.6 ML, UNK
     Route: 058
     Dates: start: 20130122
  16. ERYTHROPOIETIN [Concomitant]
     Active Substance: ERYTHROPOIETIN
     Dosage: 40000 UNK, UNK
     Route: 058
     Dates: start: 20130905, end: 20130912
  17. ALLOPURINOLO [Concomitant]
     Active Substance: ALLOPURINOL
     Dosage: 300 MG, UNK
     Route: 048
     Dates: start: 20130822, end: 20130823
  18. TRIMIPRAMINE MALEATE. [Concomitant]
     Active Substance: TRIMIPRAMINE MALEATE
     Dosage: 25 MG, UNK
     Route: 048
     Dates: start: 20130820, end: 20130831
  19. METILPREDNISOLONE [Concomitant]
     Active Substance: METHYLPREDNISOLONE
     Dosage: 40 MG, UNK
     Route: 042
     Dates: start: 20130824, end: 20130824
  20. OMEPRAZOL                          /00661201/ [Concomitant]
     Active Substance: OMEPRAZOLE
     Dosage: 20 MG, UNK
     Route: 048
     Dates: start: 20121211
  21. PANTOPRAZOLO [Concomitant]
     Dosage: 40 MG, UNK
     Route: 048
     Dates: start: 20130822, end: 20130824
  22. RIFAXIMINA [Concomitant]
     Dosage: 400 MG, UNK
     Route: 048
     Dates: start: 20130819, end: 20130824
  23. DIAZEPAM. [Concomitant]
     Active Substance: DIAZEPAM
     Dosage: 12 GTT, UNK
     Route: 048
     Dates: start: 20130824, end: 20130824
  24. EFFENTORA [Concomitant]
     Active Substance: FENTANYL CITRATE
     Dosage: 400 MUG, UNK
     Route: 048
     Dates: start: 20121211
  25. ACICLIN [Concomitant]
     Active Substance: ACYCLOVIR
     Dosage: 400 MG, UNK
     Route: 048
     Dates: start: 20130122, end: 20131004
  26. NATECAL D3 [Concomitant]
     Active Substance: CALCIUM CARBONATE\CHOLECALCIFEROL
     Dosage: 600MG/400IU
     Route: 048
     Dates: start: 20130122
  27. ONDANSETRON [Concomitant]
     Active Substance: ONDANSETRON
     Dosage: 4 MG, UNK
     Route: 042
     Dates: start: 20130822, end: 20130824
  28. PURSENNID                          /00142207/ [Concomitant]
     Active Substance: SENNOSIDES A AND B CALCIUM
     Dosage: 2 UNK, UNK
     Route: 048
     Dates: start: 20130825, end: 20130825
  29. TEVAGRASTIM [Concomitant]
     Active Substance: FILGRASTIM
     Dosage: 30 UNK, UNK
     Route: 058
     Dates: start: 20130825, end: 20130904
  30. CITALOPRAM [Concomitant]
     Active Substance: CITALOPRAM HYDROBROMIDE
     Dosage: 10 MG, UNK
     Route: 048
     Dates: start: 20130108
  31. DEXAMETHASONE. [Concomitant]
     Active Substance: DEXAMETHASONE
     Dosage: 8 MG, UNK
     Route: 042
     Dates: start: 20130822, end: 20130824
  32. FUROSEMIDE. [Concomitant]
     Active Substance: FUROSEMIDE
     Dosage: 20 MG, UNK
     Route: 042
     Dates: start: 20130822, end: 20130825
  33. METOCLOPRAMIDE. [Concomitant]
     Active Substance: METOCLOPRAMIDE
     Dosage: 10 MG, UNK
     Route: 042
     Dates: start: 20130827, end: 20130827

REACTIONS (1)
  - Supraventricular tachycardia [Recovered/Resolved]

NARRATIVE: CASE EVENT DATE: 20131019
